FAERS Safety Report 8844081 (Version 2)
Quarter: 2012Q4

REPORT INFORMATION
  Report Type: 
  Country: US (occurrence: US)
  Receive Date: 20121016
  Receipt Date: 20121030
  Transmission Date: 20130627
  Serious: No
  Sender: FDA-Public Use
  Company Number: US-VERTEX PHARMACEUTICAL INC.-2012-022817

PATIENT
  Sex: Male

DRUGS (10)
  1. VX-770 [Suspect]
     Indication: CYSTIC FIBROSIS
     Dosage: 150 mg, bid
     Route: 048
     Dates: start: 20120526
  2. XOPENEX [Concomitant]
  3. MIRALAX [Concomitant]
  4. CREON [Concomitant]
  5. SOURCECF PEDIATRIC [Concomitant]
  6. PRILOSEC                           /00661201/ [Concomitant]
  7. VITAMIN D [Concomitant]
  8. HYPERSOL B [Concomitant]
  9. ZYRTEC [Concomitant]
  10. PULVINAL BECLOMETASONE [Concomitant]

REACTIONS (4)
  - Pseudomonas infection [Not Recovered/Not Resolved]
  - Dyspnoea [Not Recovered/Not Resolved]
  - Weight increased [Not Recovered/Not Resolved]
  - Swelling [Not Recovered/Not Resolved]
